FAERS Safety Report 5666804-2 (Version None)
Quarter: 2008Q1

REPORT INFORMATION
  Report Type: 
  Country: None (occurrence: None)
  Receive Date: 20080315
  Receipt Date: 20080104
  Transmission Date: 20080703
  Serious: No
  Sender: FDA-Public Use
  Company Number: US-ABBOTT-08P-163-0432136-00

PATIENT
  Sex: Male
  Weight: 68.1 kg

DRUGS (10)
  1. HUMIRA [Suspect]
     Indication: ANKYLOSING SPONDYLITIS
     Route: 058
     Dates: start: 20071120
  2. HYDROXYCHLOROQUINE SULFATE [Suspect]
     Indication: DRUG USE FOR UNKNOWN INDICATION
  3. ETODOLAC [Concomitant]
     Indication: ANTIINFLAMMATORY THERAPY
  4. TIZANIDINE HYDROCHLORIDE [Concomitant]
     Indication: DRUG USE FOR UNKNOWN INDICATION
  5. ROZAREM [Concomitant]
     Indication: SLEEP DISORDER THERAPY
  6. AMLODIPINE [Concomitant]
     Indication: PRINZMETAL ANGINA
  7. AMLODIPINE [Concomitant]
     Indication: BLOOD PRESSURE MANAGEMENT
  8. TRANDOLAPRIL [Concomitant]
     Indication: PRINZMETAL ANGINA
  9. TRANDOLAPRIL [Concomitant]
     Indication: BLOOD PRESSURE MANAGEMENT
  10. TESTOSTERONE [Concomitant]
     Indication: ANDROGEN DEFICIENCY

REACTIONS (8)
  - ASTHENIA [None]
  - GASTROINTESTINAL DISORDER [None]
  - HYPOAESTHESIA [None]
  - ORAL HERPES [None]
  - PARAESTHESIA [None]
  - RASH [None]
  - SENSORY DISTURBANCE [None]
  - SINUSITIS [None]
